FAERS Safety Report 20482108 (Version 9)
Quarter: 2024Q2

REPORT INFORMATION
  Report Type: Spontaneous
  Country: CA (occurrence: CA)
  Receive Date: 20220216
  Receipt Date: 20240517
  Transmission Date: 20240715
  Serious: Yes (Hospitalization, Other)
  Sender: FDA-Public Use
  Company Number: CA-CELLTRION INC.-2022CA001825

PATIENT

DRUGS (3)
  1. INFLECTRA [Suspect]
     Active Substance: INFLIXIMAB-DYYB
     Indication: Crohn^s disease
     Dosage: 300 MG, EVERY 4 WEEKS
     Route: 042
     Dates: start: 20210206
  2. INFLECTRA [Suspect]
     Active Substance: INFLIXIMAB-DYYB
     Dosage: 300 MG, EVERY 4 WEEKS
     Route: 042
     Dates: start: 20240120
  3. INFLECTRA [Suspect]
     Active Substance: INFLIXIMAB-DYYB
     Dosage: 300 MG, AFTER 6 WEEKS (PRESCRIBED EVERY 4 WEEKS)
     Route: 042
     Dates: start: 20240302

REACTIONS (4)
  - Internal haemorrhage [Recovering/Resolving]
  - Failure to thrive [Unknown]
  - Condition aggravated [Not Recovered/Not Resolved]
  - Malaise [Unknown]

NARRATIVE: CASE EVENT DATE: 20230401
